FAERS Safety Report 19400232 (Version 2)
Quarter: 2021Q3

REPORT INFORMATION
  Report Type: Spontaneous
  Country: US (occurrence: US)
  Receive Date: 20210610
  Receipt Date: 20210817
  Transmission Date: 20211014
  Serious: Yes (Hospitalization, Other)
  Sender: FDA-Public Use
  Company Number: US-SAOL THERAPEUTICS-2021SAO00205

PATIENT
  Age: 27 Year
  Sex: Male

DRUGS (2)
  1. BACLOFEN. [Suspect]
     Active Substance: BACLOFEN
     Dosage: UNK
     Route: 065
  2. BACLOFEN. [Suspect]
     Active Substance: BACLOFEN
     Route: 048

REACTIONS (4)
  - Drug withdrawal syndrome [Recovering/Resolving]
  - Intentional overdose [Recovering/Resolving]
  - Malignant catatonia [Recovering/Resolving]
  - Encephalopathy [Recovering/Resolving]
